FAERS Safety Report 25861897 (Version 2)
Quarter: 2025Q4

REPORT INFORMATION
  Report Type: Spontaneous
  Country: US (occurrence: US)
  Receive Date: 20250930
  Receipt Date: 20251002
  Transmission Date: 20260118
  Serious: No
  Sender: ABBVIE
  Company Number: US-ABBVIE-6477804

PATIENT
  Age: 53 Year
  Sex: Male

DRUGS (6)
  1. RINVOQ [Suspect]
     Active Substance: UPADACITINIB
     Indication: Dermatitis atopic
     Dosage: STRENGHT: 30 MG
     Route: 048
     Dates: start: 202402
  2. RINVOQ [Suspect]
     Active Substance: UPADACITINIB
     Indication: Dermatitis atopic
     Dosage: STRENGTH: 30 MG
     Route: 048
     Dates: start: 2020, end: 202305
  3. DUPILUMAB [Suspect]
     Active Substance: DUPILUMAB
     Indication: Product used for unknown indication
     Route: 065
     Dates: start: 2016
  4. DUPILUMAB [Suspect]
     Active Substance: DUPILUMAB
     Indication: Product used for unknown indication
     Route: 065
     Dates: start: 202305, end: 202309
  5. CYCLOSPORINE [Suspect]
     Active Substance: CYCLOSPORINE
     Indication: Product used for unknown indication
     Dosage: 3 MG/KG BODY WEIGHT (ONLY 2 WEEKS)
     Route: 065
  6. BARICITINIB [Suspect]
     Active Substance: BARICITINIB
     Indication: Product used for unknown indication
     Route: 065
     Dates: start: 202310, end: 202402

REACTIONS (5)
  - Pruritus [Recovering/Resolving]
  - Impaired work ability [Unknown]
  - Sleep disorder [Recovering/Resolving]
  - Drug ineffective [Unknown]
  - Conjunctivitis [Unknown]
